FAERS Safety Report 12223501 (Version 1)
Quarter: 2016Q1

REPORT INFORMATION
  Report Type: Spontaneous
  Country: US (occurrence: US)
  Receive Date: 20160330
  Receipt Date: 20160330
  Transmission Date: 20160526
  Serious: No
  Sender: FDA-Public Use
  Company Number: PHEH2016US007353

PATIENT
  Age: 27 Year
  Sex: Male
  Weight: 81.19 kg

DRUGS (1)
  1. GILENYA [Suspect]
     Active Substance: FINGOLIMOD HYDROCHLORIDE
     Indication: PRODUCT USED FOR UNKNOWN INDICATION
     Dosage: 0.5 MG, QD
     Route: 048
     Dates: start: 20151021, end: 20160322

REACTIONS (2)
  - Visual impairment [Unknown]
  - Macular oedema [Unknown]

NARRATIVE: CASE EVENT DATE: 20151021
